FAERS Safety Report 8372096-6 (Version None)
Quarter: 2012Q2

REPORT INFORMATION
  Report Type: 
  Country: None (occurrence: None)
  Receive Date: 20120520
  Receipt Date: 20120514
  Transmission Date: 20120825
  Serious: Yes (Hospitalization)
  Sender: FDA-Public Use
  Company Number: US-AMGEN-USASP2010002429

PATIENT
  Age: 48 Year
  Sex: Female

DRUGS (3)
  1. PLAQUENIL [Concomitant]
     Dosage: 2 MG, UNK
  2. TREXALL [Concomitant]
     Dosage: 1 MG, UNK
     Dates: start: 20100401
  3. ENBREL [Suspect]
     Indication: ANKYLOSING SPONDYLITIS
     Dosage: 50 MG, QWK
     Dates: start: 20040113

REACTIONS (11)
  - VISION BLURRED [None]
  - INJECTION SITE PRURITUS [None]
  - INJECTION SITE WARMTH [None]
  - INJECTION SITE PAIN [None]
  - INJECTION SITE ERYTHEMA [None]
  - ARTHRALGIA [None]
  - CYSTITIS [None]
  - PARAESTHESIA [None]
  - HYPOAESTHESIA [None]
  - BACK PAIN [None]
  - SINUSITIS [None]
